FAERS Safety Report 9275248 (Version 1)
Quarter: 2013Q2

REPORT INFORMATION
  Report Type: Spontaneous
  Country: US (occurrence: None)
  Receive Date: 20130430
  Receipt Date: 20130430
  Transmission Date: 20140414
  Serious: Yes (Hospitalization)
  Sender: FDA-Public Use
  Company Number: A1020321A

PATIENT
  Age: 50 Year
  Sex: Female

DRUGS (6)
  1. CALCIUM CARBONATE (FORMULATION UNKNOWN) (CALCIUM CARBONATE) [Suspect]
     Indication: BLOOD PHOSPHORUS INCREASED
     Route: 048
  2. CALCIUM CARBONATE [Suspect]
     Indication: BLOOD PHOSPHORUS INCREASED
     Route: 048
  3. MINOXIDIL [Concomitant]
  4. METOPROLOL [Concomitant]
  5. HUMAN INSULIN [Concomitant]
  6. VITAMIN D [Concomitant]

REACTIONS (21)
  - Pancreatic disorder [None]
  - Swelling [None]
  - Blood calcium increased [None]
  - Gastric disorder [None]
  - Abdominal distension [None]
  - Malaise [None]
  - Abdominal pain [None]
  - Gastric pH decreased [None]
  - Diarrhoea [None]
  - Burning sensation [None]
  - Constipation [None]
  - Anorectal discomfort [None]
  - Incorrect dose administered [None]
  - Proctalgia [None]
  - Thermal burn [None]
  - Liver disorder [None]
  - Blood parathyroid hormone decreased [None]
  - Mobility decreased [None]
  - Abdominal pain upper [None]
  - Aphagia [None]
  - Gastrointestinal disorder [None]
